FAERS Safety Report 5099450-2 (Version None)
Quarter: 2006Q3

REPORT INFORMATION
  Report Type: 
  Country: None (occurrence: None)
  Receive Date: 20060906
  Receipt Date: 20060824
  Transmission Date: 20061208
  Serious: Yes (Other)
  Sender: FDA-Public Use
  Company Number: 2006104942

PATIENT
  Age: 35 Year
  Sex: Female

DRUGS (3)
  1. CHANTIX [Suspect]
     Indication: SMOKING CESSATION THERAPY
     Dosage: 1.5 MG (2 IN 1 D)
     Dates: start: 20060801
  2. PAXIL [Suspect]
     Indication: BIPOLAR DISORDER
     Dates: start: 20040101
  3. SEROQUEL [Suspect]
     Indication: BIPOLAR DISORDER
     Dates: start: 20040101

REACTIONS (9)
  - ABNORMAL BEHAVIOUR [None]
  - ANGER [None]
  - DISTURBANCE IN ATTENTION [None]
  - HYPERSOMNIA [None]
  - LETHARGY [None]
  - MANIA [None]
  - SCREAMING [None]
  - SOMNOLENCE [None]
  - VOMITING [None]
